FAERS Safety Report 18909076 (Version 1)
Quarter: 2021Q1

REPORT INFORMATION
  Report Type: Spontaneous
  Country: SE (occurrence: SE)
  Receive Date: 20210218
  Receipt Date: 20210218
  Transmission Date: 20210420
  Serious: Yes (Hospitalization)
  Sender: FDA-Public Use
  Company Number: SE-PFIZER INC-2021065865

PATIENT
  Sex: Female

DRUGS (1)
  1. TERRA?CORTRIL POLYMYXIN B [Suspect]
     Active Substance: HYDROCORTISONE\OXYTETRACYCLINE HYDROCHLORIDE\POLYMYXIN B SULFATE
     Dosage: UNK

REACTIONS (5)
  - Urticaria [Unknown]
  - Asthenia [Unknown]
  - Pallor [Unknown]
  - Blood pressure abnormal [Unknown]
  - Anaphylactic reaction [Unknown]
